FAERS Safety Report 4502702-5 (Version None)
Quarter: 2004Q4

REPORT INFORMATION
  Report Type: 
  Country: None (occurrence: None)
  Receive Date: 20041109
  Receipt Date: 20041025
  Transmission Date: 20050328
  Serious: Yes (Hospitalization)
  Sender: FDA-Public Use
  Company Number: 105299ISR

PATIENT
  Age: 46 Year
  Sex: Female

DRUGS (4)
  1. FLUOROURACIL [Suspect]
     Indication: BREAST CANCER
     Dosage: 900 MILLIGRAM, INTRAVENOUS NOS
     Route: 042
     Dates: start: 20040715
  2. EPIRUBICIN [Suspect]
     Indication: BREAST CANCER
     Dosage: INTRAVENOUS NOS
     Route: 042
     Dates: start: 20040715
  3. CYCLOPHOSPHAMIDE [Suspect]
     Indication: BREAST CANCER
     Dosage: 900 MILLIGRAM, INTRAVENOUS NOS
     Route: 042
     Dates: start: 20040715
  4. NEULASTA [Suspect]
     Indication: CHEMOTHERAPY
     Dates: start: 20040701

REACTIONS (5)
  - DRUG INEFFECTIVE [None]
  - NEUTROPENIA [None]
  - PYREXIA [None]
  - STOMATITIS [None]
  - THERAPY NON-RESPONDER [None]
